FAERS Safety Report 8495395-6 (Version None)
Quarter: 2012Q3

REPORT INFORMATION
  Report Type: 
  Country: None (occurrence: None)
  Receive Date: 20120709
  Receipt Date: 20120628
  Transmission Date: 20120928
  Serious: Yes (Hospitalization)
  Sender: FDA-Public Use
  Company Number: US-ASTRAZENECA-2007UW26052

PATIENT
  Age: 77 Year
  Sex: Female
  Weight: 28.6 kg

DRUGS (20)
  1. SERTRALINE HYDROCHLORIDE [Concomitant]
  2. SYMBICORT [Interacting]
     Dosage: 160/4.5 MCG TWO FUFFS BID
     Route: 055
     Dates: start: 20100101
  3. METOPROLOL TARTRATE [Interacting]
     Indication: ANGIOPATHY
     Route: 048
     Dates: start: 20110911
  4. ALBUTEROL [Concomitant]
     Dosage: 1-2 PUFFS PRN
     Route: 055
  5. IMDUR [Concomitant]
     Route: 048
  6. SYMBICORT [Interacting]
     Indication: CHRONIC OBSTRUCTIVE PULMONARY DISEASE
     Dosage: 80/4.5 MCG ONE FUFF BID
     Route: 055
     Dates: start: 20070701
  7. METOPROLOL TARTRATE [Interacting]
     Indication: HYPERTENSION
     Route: 048
     Dates: start: 20110911
  8. OCUPRESS [Concomitant]
  9. TRAZODONE HCL [Concomitant]
     Dosage: 150 MG
  10. SYMBICORT [Interacting]
     Dosage: 80/4.5 MCG TWO FUFFS BID
     Route: 055
     Dates: start: 20090101
  11. SYMBICORT [Interacting]
     Dosage: 160/4.5 MCG TWO FUFFS BID
     Route: 055
     Dates: start: 20100101
  12. SPIRIVA [Concomitant]
  13. SYMBICORT [Interacting]
     Dosage: TWO PUFFS TWO TIMES A DAY
     Route: 055
     Dates: start: 20100701
  14. SYMBICORT [Suspect]
     Indication: ASTHMA
     Dosage: 80/4.5 MCG ONE FUFF BID
     Route: 055
     Dates: start: 20070701
  15. SYMBICORT [Interacting]
     Dosage: 160/4.5 MCG TWO FUFFS BID
     Route: 055
     Dates: start: 20080101, end: 20090101
  16. SYMBICORT [Interacting]
     Dosage: TWO PUFFS TWO TIMES A DAY
     Route: 055
     Dates: start: 20100701
  17. ACCUPRIL [Concomitant]
     Indication: HYPERTENSION
     Route: 048
  18. CLONAZEPAM [Concomitant]
     Dosage: TWICE A DAY
  19. SYMBICORT [Interacting]
     Dosage: 160/4.5 MCG TWO FUFFS BID
     Route: 055
     Dates: start: 20080101, end: 20090101
  20. SYMBICORT [Interacting]
     Dosage: 80/4.5 MCG TWO FUFFS BID
     Route: 055
     Dates: start: 20090101

REACTIONS (9)
  - DRUG INTERACTION [None]
  - PNEUMOTHORAX [None]
  - DYSPNOEA [None]
  - BLOOD PRESSURE FLUCTUATION [None]
  - CIRCUMSTANCE OR INFORMATION CAPABLE OF LEADING TO MEDICATION ERROR [None]
  - NAUSEA [None]
  - DRUG EFFECT DECREASED [None]
  - WHEEZING [None]
  - ASTHMA [None]
